FAERS Safety Report 9035006 (Version 2)
Quarter: 2013Q1

REPORT INFORMATION
  Report Type: Spontaneous
  Country: DK (occurrence: None)
  Receive Date: 20130118
  Receipt Date: 20130214
  Transmission Date: 20140127
  Serious: Yes (Other)
  Sender: FDA-Public Use
  Company Number: 2013MA000464

PATIENT
  Age: 46 Year
  Sex: Male

DRUGS (2)
  1. HYDROCHLOROTHIAZIDE TABLETS, USP [Suspect]
     Indication: ARRHYTHMIA
     Route: 048
     Dates: start: 20121107, end: 20121109
  2. PROVAS [Concomitant]

REACTIONS (4)
  - Anxiety [None]
  - Blood pressure increased [None]
  - Restlessness [None]
  - Heart rate irregular [None]
